FAERS Safety Report 24024815 (Version 4)
Quarter: 2024Q3

REPORT INFORMATION
  Report Type: Report from Study
  Country: DK (occurrence: DK)
  Receive Date: 20240628
  Receipt Date: 20240710
  Transmission Date: 20241016
  Serious: No
  Sender: ROCHE
  Company Number: DK-ROCHE-3472722

PATIENT
  Age: 58 Year
  Sex: Female

DRUGS (3)
  1. PHESGO [Suspect]
     Active Substance: HYALURONIDASE-ZZXF\PERTUZUMAB\TRASTUZUMAB
     Indication: Breast cancer
     Dosage: 600/600 MG
     Route: 058
     Dates: start: 20221202
  2. VINORELBINE [Concomitant]
     Active Substance: VINORELBINE TARTRATE
  3. LETROZOLE [Concomitant]
     Active Substance: LETROZOLE

REACTIONS (3)
  - Eczema [Unknown]
  - Fatigue [Unknown]
  - Muscle spasms [Unknown]

NARRATIVE: CASE EVENT DATE: 20230215
